FAERS Safety Report 7453783-0 (Version None)
Quarter: 2011Q2

REPORT INFORMATION
  Report Type: 
  Country: None (occurrence: None)
  Receive Date: 20110502
  Receipt Date: 20110121
  Transmission Date: 20111010
  Serious: No
  Sender: FDA-Public Use
  Company Number: US-ASTRAZENECA-2011SE03910

PATIENT
  Age: 65 Year
  Sex: Female

DRUGS (3)
  1. NEXIUM [Suspect]
     Route: 048
  2. SEROQUEL [Suspect]
     Route: 048
  3. VITAMINS FOR HER EYES [Concomitant]

REACTIONS (6)
  - NERVOUSNESS [None]
  - BLOOD PRESSURE SYSTOLIC INCREASED [None]
  - ABDOMINAL DISCOMFORT [None]
  - FATIGUE [None]
  - DRUG DOSE OMISSION [None]
  - STRESS [None]
